FAERS Safety Report 24932523 (Version 1)
Quarter: 2025Q1

REPORT INFORMATION
  Report Type: Spontaneous
  Country: CH (occurrence: CH)
  Receive Date: 20250205
  Receipt Date: 20250205
  Transmission Date: 20250409
  Serious: No
  Sender: EXELIXIS
  Company Number: CH-BRISTOL-MYERS SQUIBB COMPANY-2024-137721

PATIENT
  Age: 53 Year
  Sex: Male

DRUGS (19)
  1. CABOMETYX [Suspect]
     Active Substance: CABOZANTINIB S-MALATE
     Indication: Clear cell renal cell carcinoma
     Route: 065
  2. OPDIVO [Suspect]
     Active Substance: NIVOLUMAB
     Indication: Clear cell renal cell carcinoma
     Dates: start: 20240111
  3. OPDIVO [Suspect]
     Active Substance: NIVOLUMAB
     Dates: start: 20240125
  4. OPDIVO [Suspect]
     Active Substance: NIVOLUMAB
     Dates: start: 20240208
  5. OPDIVO [Suspect]
     Active Substance: NIVOLUMAB
     Dates: start: 20240221
  6. OPDIVO [Suspect]
     Active Substance: NIVOLUMAB
     Dates: start: 20240306
  7. OPDIVO [Suspect]
     Active Substance: NIVOLUMAB
     Dates: start: 20240319
  8. OPDIVO [Suspect]
     Active Substance: NIVOLUMAB
     Dates: start: 20240411
  9. OPDIVO [Suspect]
     Active Substance: NIVOLUMAB
     Dates: start: 20240425
  10. OPDIVO [Suspect]
     Active Substance: NIVOLUMAB
     Dates: start: 20240508
  11. OPDIVO [Suspect]
     Active Substance: NIVOLUMAB
     Dates: start: 20240523
  12. OPDIVO [Suspect]
     Active Substance: NIVOLUMAB
     Dates: start: 20240606
  13. OPDIVO [Suspect]
     Active Substance: NIVOLUMAB
     Dates: start: 20240619
  14. OPDIVO [Suspect]
     Active Substance: NIVOLUMAB
     Dates: start: 20240703
  15. OPDIVO [Suspect]
     Active Substance: NIVOLUMAB
     Dates: start: 20240717
  16. OPDIVO [Suspect]
     Active Substance: NIVOLUMAB
     Dates: start: 20240731
  17. OPDIVO [Suspect]
     Active Substance: NIVOLUMAB
     Dates: start: 20240826
  18. OPDIVO [Suspect]
     Active Substance: NIVOLUMAB
     Dates: start: 20240909
  19. OPDIVO [Suspect]
     Active Substance: NIVOLUMAB
     Dates: start: 20240923

REACTIONS (1)
  - Off label use [Unknown]

NARRATIVE: CASE EVENT DATE: 20240101
